FAERS Safety Report 16852043 (Version 1)
Quarter: 2019Q3

REPORT INFORMATION
  Report Type: Spontaneous
  Country: IT (occurrence: IT)
  Receive Date: 20190925
  Receipt Date: 20190925
  Transmission Date: 20191005
  Serious: Yes (Life-Threatening, Hospitalization, Other)
  Sender: FDA-Public Use
  Company Number: IT-MYLANLABS-2019M1083745

PATIENT
  Age: 75 Year
  Sex: Female

DRUGS (2)
  1. METFORMIN [Suspect]
     Active Substance: METFORMIN HYDROCHLORIDE
     Indication: STEROID DIABETES
  2. METFORMIN [Suspect]
     Active Substance: METFORMIN HYDROCHLORIDE
     Indication: DIABETES MELLITUS
     Dosage: 1800 MILLIGRAM, QD (500-800-500)

REACTIONS (5)
  - Hypotension [Recovering/Resolving]
  - Haemodynamic instability [Unknown]
  - Metabolic acidosis [Recovered/Resolved]
  - Respiratory failure [Unknown]
  - Toxicity to various agents [Unknown]
